FAERS Safety Report 8538002-6 (Version None)
Quarter: 2012Q3

REPORT INFORMATION
  Report Type: 
  Country: None (occurrence: None)
  Receive Date: 20120725
  Receipt Date: 20120721
  Transmission Date: 20120928
  Serious: No
  Sender: FDA-Public Use
  Company Number: US-PFIZER INC-2012176639

PATIENT
  Sex: Female
  Weight: 74.83 kg

DRUGS (2)
  1. DIAZEPAM [Concomitant]
     Indication: ANXIETY
     Dosage: UNK
  2. LYRICA [Suspect]
     Indication: COMPLEX REGIONAL PAIN SYNDROME
     Dosage: 50 MG, 2X/DAY
     Route: 048
     Dates: start: 20120720

REACTIONS (5)
  - INSOMNIA [None]
  - TACHYPHRENIA [None]
  - AGITATION [None]
  - ANXIETY [None]
  - NERVOUSNESS [None]
